FAERS Safety Report 11930424 (Version 1)
Quarter: 2016Q1

REPORT INFORMATION
  Report Type: Spontaneous
  Country: US (occurrence: None)
  Receive Date: 20160120
  Receipt Date: 20160120
  Transmission Date: 20160526
  Serious: Yes (Hospitalization)
  Sender: FDA-Public Use
  Company Number: None

PATIENT
  Age: 79 Year
  Sex: Male
  Weight: 78.1 kg

DRUGS (3)
  1. VINCRISTINE SULFATE. [Suspect]
     Active Substance: VINCRISTINE SULFATE
     Dates: end: 20151231
  2. METHOTREXATE [Suspect]
     Active Substance: METHOTREXATE
     Dates: end: 20151231
  3. RITUXIMAB (MOAB C2B8 ANTI CD20, CHIMERIC) [Suspect]
     Active Substance: RITUXIMAB
     Dates: end: 20151221

REACTIONS (9)
  - Dehydration [None]
  - Rash [None]
  - Urinary tract infection [None]
  - Cough [None]
  - Mucosal inflammation [None]
  - Unresponsive to stimuli [None]
  - Hypovolaemia [None]
  - Hyponatraemia [None]
  - Hypophagia [None]

NARRATIVE: CASE EVENT DATE: 20160107
